FAERS Safety Report 17006767 (Version 1)
Quarter: 2019Q4

REPORT INFORMATION
  Report Type: Spontaneous
  Country: US (occurrence: US)
  Receive Date: 20191107
  Receipt Date: 20191107
  Transmission Date: 20200122
  Serious: No
  Sender: FDA-Public Use
  Company Number: US-TARO-2019TAR00139

PATIENT
  Age: 80 Year
  Sex: Female

DRUGS (1)
  1. MUPIROCIN OINTMENT USP 2% [Suspect]
     Active Substance: MUPIROCIN
     Dosage: UNK
     Route: 061
     Dates: start: 20190220

REACTIONS (2)
  - Application site pain [Unknown]
  - Off label use [Unknown]

NARRATIVE: CASE EVENT DATE: 20190220
